FAERS Safety Report 6851093-3 (Version None)
Quarter: 2010Q3

REPORT INFORMATION
  Report Type: 
  Country: None (occurrence: None)
  Receive Date: 20100716
  Receipt Date: 20071024
  Transmission Date: 20110219
  Serious: No
  Sender: FDA-Public Use
  Company Number: US-PFIZER INC-2007091221

PATIENT
  Sex: Female
  Weight: 85.9 kg

DRUGS (14)
  1. CHANTIX [Suspect]
     Indication: SMOKING CESSATION THERAPY
     Route: 048
     Dates: start: 20070428, end: 20070507
  2. ADVAIR DISKUS 100/50 [Concomitant]
  3. HYDROCHLOROTHIAZIDE [Concomitant]
  4. LIPITOR [Concomitant]
  5. NITRO-DUR [Concomitant]
  6. OMEPRAZOLE [Concomitant]
  7. NIFEDIPINE [Concomitant]
  8. SPIRIVA [Concomitant]
  9. TRAZODONE HYDROCHLORIDE [Concomitant]
     Indication: SLEEP DISORDER
  10. ALBUTEROL [Concomitant]
  11. CYCLOBENZAPRINE [Concomitant]
     Indication: MUSCLE SPASMS
  12. NAPROXEN [Concomitant]
  13. THEOPHYLLINE [Concomitant]
  14. NITROGLYCERIN [Concomitant]
     Indication: ANGINA PECTORIS

REACTIONS (4)
  - DECREASED APPETITE [None]
  - INSOMNIA [None]
  - NAUSEA [None]
  - VOMITING [None]
